FAERS Safety Report 5765589-9 (Version None)
Quarter: 2008Q2

REPORT INFORMATION
  Report Type: 
  Country: None (occurrence: None)
  Receive Date: 20080605
  Receipt Date: 20080529
  Transmission Date: 20081010
  Serious: Yes (Other)
  Sender: FDA-Public Use
  Company Number: CHNY2008GB01651

PATIENT
  Age: 68 Year
  Sex: Male

DRUGS (9)
  1. NICOTINE [Suspect]
     Indication: SMOKING CESSATION THERAPY
     Dosage: 2 X 2 MG GUMS / DAY, CHEWED
     Dates: start: 20080101
  2. METFORMIN HCL [Concomitant]
  3. DIHYDROCODEINE COMPOUND [Concomitant]
  4. DICLOFLEX (DICLOFENAC SODIUM) [Concomitant]
  5. NEOCLARITYN (DESLORATADINE) [Concomitant]
  6. TRAMADOL HCL [Concomitant]
  7. SALBUTAMOL (SALBUTAMOL) [Concomitant]
  8. ANTIHISTAMINES (NO INGREDIENTS/SUBSTANCES) [Concomitant]
  9. STEROIDS NOS (NO INGREDIENTS/SUBSTANCES) [Concomitant]

REACTIONS (2)
  - ANAPHYLACTIC REACTION [None]
  - MOUTH ULCERATION [None]
